FAERS Safety Report 9593314 (Version 10)
Quarter: 2015Q4

REPORT INFORMATION
  Report Type: Report from Study
  Country: US (occurrence: US)
  Receive Date: 20131004
  Receipt Date: 20151023
  Transmission Date: 20160305
  Serious: Yes (Hospitalization, Other)
  Sender: FDA-Public Use
  Company Number: US-ALEXION-A201301888

PATIENT
  Age: 71 Year
  Sex: Female

DRUGS (6)
  1. SOLIRIS [Suspect]
     Active Substance: ECULIZUMAB
     Indication: PAROXYSMAL NOCTURNAL HAEMOGLOBINURIA
     Dosage: UNK
     Route: 042
  2. AMITRIPTYLINE [Concomitant]
     Active Substance: AMITRIPTYLINE
     Indication: PRODUCT USED FOR UNKNOWN INDICATION
     Route: 048
  3. WARFARIN [Suspect]
     Active Substance: WARFARIN
     Indication: PRODUCT USED FOR UNKNOWN INDICATION
     Route: 048
  4. SIMVASTATIN. [Concomitant]
     Active Substance: SIMVASTATIN
     Indication: PRODUCT USED FOR UNKNOWN INDICATION
     Route: 048
  5. GABAPENTIN. [Concomitant]
     Active Substance: GABAPENTIN
     Indication: PRODUCT USED FOR UNKNOWN INDICATION
     Route: 048
  6. SOLIRIS [Suspect]
     Active Substance: ECULIZUMAB
     Dosage: 900 MG, Q2W
     Route: 042
     Dates: start: 20100211

REACTIONS (34)
  - Haemorrhagic stroke [Unknown]
  - Neurological examination abnormal [Unknown]
  - Fatigue [Unknown]
  - Nasopharyngitis [Not Recovered/Not Resolved]
  - Paraesthesia [Unknown]
  - Stent malfunction [Unknown]
  - Device occlusion [Unknown]
  - Hypertension [Unknown]
  - Rhinorrhoea [Unknown]
  - Blood pressure increased [Not Recovered/Not Resolved]
  - Hemiparesis [Unknown]
  - Mental impairment [Unknown]
  - Chest pain [Unknown]
  - Haemoglobinuria [Unknown]
  - Cardiac disorder [Unknown]
  - Dyspnoea [Unknown]
  - Chest pain [Unknown]
  - Back pain [Unknown]
  - Balance disorder [Unknown]
  - Intracranial pressure increased [Unknown]
  - Aphasia [Unknown]
  - Malaise [Unknown]
  - Blood pressure increased [Recovered/Resolved]
  - Sleep apnoea syndrome [Unknown]
  - White blood cell count decreased [Unknown]
  - Bronchitis [Unknown]
  - Pain [Unknown]
  - Walking aid user [Unknown]
  - Sneezing [Unknown]
  - Nasopharyngitis [Unknown]
  - Fall [Unknown]
  - Cardiac failure [Unknown]
  - Nasal congestion [Unknown]
  - Fall [Unknown]

NARRATIVE: CASE EVENT DATE: 20140803
